FAERS Safety Report 7701264-9 (Version None)
Quarter: 2011Q3

REPORT INFORMATION
  Report Type: 
  Country: None (occurrence: None)
  Receive Date: 20110822
  Receipt Date: 20110817
  Transmission Date: 20111222
  Serious: Yes (Other)
  Sender: FDA-Public Use
  Company Number: GB-GLAXOSMITHKLINE-B0740436A

PATIENT
  Age: 82 Year
  Sex: Male

DRUGS (1)
  1. REQUIP XL [Suspect]
     Indication: PRODUCT USED FOR UNKNOWN INDICATION
     Dosage: 8MG AT NIGHT
     Route: 048

REACTIONS (2)
  - PARKINSON'S DISEASE [None]
  - TREATMENT NONCOMPLIANCE [None]
